FAERS Safety Report 9465057 (Version 1)
Quarter: 2013Q3

REPORT INFORMATION
  Report Type: Spontaneous
  Country: GB (occurrence: GB)
  Receive Date: 20130819
  Receipt Date: 20130819
  Transmission Date: 20140515
  Serious: Yes (Other)
  Sender: FDA-Public Use
  Company Number: GB-TEVA-425410ISR

PATIENT
  Age: 28 Year
  Sex: Female
  Weight: 48 kg

DRUGS (7)
  1. AMOXICILLIN [Suspect]
     Dates: start: 20130726
  2. PRO D3 [Concomitant]
     Dates: start: 20130426, end: 20130705
  3. ADCAL [Concomitant]
     Dates: start: 20130426, end: 20130620
  4. NAPROXEN [Concomitant]
     Dates: start: 20130515, end: 20130522
  5. ERYTHROMYCIN [Concomitant]
     Dates: start: 20130524, end: 20130531
  6. CEFALEXIN [Concomitant]
     Dates: start: 20130726
  7. CO-AMOXICLAV [Concomitant]
     Dates: start: 20130726

REACTIONS (2)
  - Drug eruption [Recovered/Resolved]
  - Throat tightness [Recovered/Resolved]
